FAERS Safety Report 5165094-7 (Version None)
Quarter: 2006Q4

REPORT INFORMATION
  Report Type: 
  Country: None (occurrence: None)
  Receive Date: 20061124
  Receipt Date: 20061109
  Transmission Date: 20070319
  Serious: Yes (Other)
  Sender: FDA-Public Use
  Company Number: 2006120843

PATIENT
  Age: 61 Year
  Sex: Male
  Weight: 72 kg

DRUGS (6)
  1. REVATIO [Suspect]
     Indication: PULMONARY HYPERTENSION
     Dosage: 60 MG (20 MG, 3 IN 1 D), ORAL
     Route: 048
     Dates: start: 20060901
  2. OXYCODONE HCL [Suspect]
     Indication: SPINAL DISORDER
     Dosage: 280 MG, ORAL
     Route: 048
  3. DOXEPIN HCL [Suspect]
     Indication: DEPRESSION
     Dosage: 100 MG, ORAL
     Route: 048
  4. OMEPRAZOLE [Suspect]
     Indication: DYSPEPSIA
     Dosage: ORAL
     Route: 048
  5. BENZODIAZEPINE DERIVATIVES [Concomitant]
  6. TORSEMIDE [Concomitant]

REACTIONS (7)
  - AMNESIA [None]
  - DIZZINESS [None]
  - DRUG INTERACTION [None]
  - DRUG LEVEL INCREASED [None]
  - LIVER FUNCTION TEST ABNORMAL [None]
  - MOBILITY DECREASED [None]
  - RENAL FAILURE [None]
